FAERS Safety Report 4969223-7 (Version None)
Quarter: 2006Q2

REPORT INFORMATION
  Report Type: 
  Country: None (occurrence: None)
  Receive Date: 20060405
  Receipt Date: 20060322
  Transmission Date: 20061013
  Serious: Yes (Death)
  Sender: FDA-Public Use
  Company Number: 2006US-01838

PATIENT
  Age: 30 Year
  Sex: Male

DRUGS (4)
  1. MIDAZOLAM HYDROCHLORIDE [Suspect]
  2. FENTANYL [Concomitant]
  3. ATRACURIUM [Concomitant]
  4. PROPOFOL [Concomitant]

REACTIONS (2)
  - ANAPHYLACTIC REACTION [None]
  - TRYPTASE INCREASED [None]
